FAERS Safety Report 17451985 (Version 1)
Quarter: 2020Q1

REPORT INFORMATION
  Report Type: Spontaneous
  Country: GB (occurrence: GB)
  Receive Date: 20200224
  Receipt Date: 20200224
  Transmission Date: 20200409
  Serious: Yes (Other)
  Sender: FDA-Public Use
  Company Number: NVSC2020GB043642

PATIENT
  Age: 45 Year
  Sex: Female
  Weight: 69.85 kg

DRUGS (3)
  1. ALLIUM SATIVUM [Concomitant]
     Indication: PRODUCT USED FOR UNKNOWN INDICATION
     Dosage: UNK
     Route: 065
  2. EVENING PRIMROSE OIL [Concomitant]
     Active Substance: EVENING PRIMROSE OIL\HERBALS
     Indication: PRODUCT USED FOR UNKNOWN INDICATION
     Dosage: UNK
     Route: 065
  3. CLARITHROMYCIN. [Suspect]
     Active Substance: CLARITHROMYCIN
     Indication: STREPTOCOCCAL INFECTION
     Dosage: 1000 MG, QD
     Route: 048
     Dates: start: 20191003, end: 20191008

REACTIONS (7)
  - Body temperature decreased [Recovered/Resolved]
  - Dissociation [Unknown]
  - Hallucination, tactile [Recovered/Resolved]
  - Fatigue [Unknown]
  - Hallucinations, mixed [Recovered/Resolved]
  - Diarrhoea [Recovered/Resolved]
  - Nightmare [Recovered/Resolved]

NARRATIVE: CASE EVENT DATE: 20191003
